FAERS Safety Report 20636728 (Version 4)
Quarter: 2022Q2

REPORT INFORMATION
  Report Type: Report from Study
  Country: US (occurrence: US)
  Receive Date: 20220325
  Receipt Date: 20220430
  Transmission Date: 20220721
  Serious: Yes (Hospitalization, Other)
  Sender: FDA-Public Use
  Company Number: US-NOVARTISPH-NVSC2022US067402

PATIENT
  Sex: Male

DRUGS (4)
  1. ENTRESTO [Suspect]
     Active Substance: SACUBITRIL\VALSARTAN
     Indication: Product used for unknown indication
     Dosage: 1 DOSAGE FORM, BID (49/51 MG)
     Route: 065
     Dates: start: 202109
  2. FUROSEMIDE [Suspect]
     Active Substance: FUROSEMIDE
     Indication: Product used for unknown indication
     Dosage: 20 MG, BID
     Route: 065
  3. FUROSEMIDE [Suspect]
     Active Substance: FUROSEMIDE
     Dosage: 20 MG, QD (DOSE REDUCED)
     Route: 065
  4. JARDIANCE [Concomitant]
     Active Substance: EMPAGLIFLOZIN
     Indication: Product used for unknown indication
     Dosage: UNK
     Route: 065

REACTIONS (10)
  - Heart rate irregular [Unknown]
  - Palpitations [Unknown]
  - Dehydration [Not Recovered/Not Resolved]
  - Renal impairment [Unknown]
  - Palpitations [Recovered/Resolved]
  - Tremor [Recovered/Resolved]
  - Blood urea abnormal [Recovered/Resolved]
  - Blood creatinine abnormal [Recovered/Resolved]
  - Blood pressure systolic decreased [Recovered/Resolved]
  - Blood pressure diastolic decreased [Recovered/Resolved]
